FAERS Safety Report 6993154-4 (Version None)
Quarter: 2010Q3

REPORT INFORMATION
  Report Type: 
  Country: None (occurrence: None)
  Receive Date: 20100917
  Receipt Date: 20100517
  Transmission Date: 20110219
  Serious: Yes (Hospitalization)
  Sender: FDA-Public Use
  Company Number: US-ASTRAZENECA-2007UW08584

PATIENT
  Sex: Male

DRUGS (2)
  1. SEROQUEL [Suspect]
     Dosage: 150 MG QHS AND 50 MG QAM
     Route: 048
     Dates: start: 20011102
  2. REMERON [Concomitant]

REACTIONS (3)
  - DIABETES MELLITUS [None]
  - HYPERGLYCAEMIC HYPEROSMOLAR NONKETOTIC SYNDROME [None]
  - TYPE 2 DIABETES MELLITUS [None]
